FAERS Safety Report 4666437-0 (Version None)
Quarter: 2005Q2

REPORT INFORMATION
  Report Type: 
  Country: None (occurrence: None)
  Receive Date: 20050517
  Receipt Date: 20050503
  Transmission Date: 20051028
  Serious: Yes (Hospitalization)
  Sender: FDA-Public Use
  Company Number: S04-USA-07716-01

PATIENT
  Age: 45 Year
  Sex: Male

DRUGS (2)
  1. LEXAPRO [Suspect]
     Indication: DEPRESSION
     Dosage: 10 MG QD PO
     Route: 048
     Dates: start: 20041120, end: 20041130
  2. LEXAPRO [Suspect]
     Indication: DEPRESSION

REACTIONS (8)
  - ABASIA [None]
  - BLOOD CREATINE PHOSPHOKINASE INCREASED [None]
  - GUILLAIN-BARRE SYNDROME [None]
  - HEADACHE [None]
  - MYALGIA [None]
  - NAUSEA [None]
  - SPEECH DISORDER [None]
  - VOMITING [None]
